FAERS Safety Report 7436908-2 (Version None)
Quarter: 2011Q2

REPORT INFORMATION
  Report Type: 
  Country: None (occurrence: None)
  Receive Date: 20110426
  Receipt Date: 20110418
  Transmission Date: 20111010
  Serious: No
  Sender: FDA-Public Use
  Company Number: US-PFIZER INC-US-WYE-H00780107

PATIENT
  Age: 57 Year
  Sex: Female
  Weight: 77.1 kg

DRUGS (7)
  1. CATAPRES [Concomitant]
  2. PREMARIN [Suspect]
     Dosage: .3 MG,1X/DAY
     Route: 048
     Dates: start: 20050505
  3. LORTAB [Concomitant]
  4. PREMPRO [Suspect]
     Indication: HORMONE REPLACEMENT THERAPY
     Dosage: 1 DF, 1X/DAY
     Route: 048
     Dates: start: 19800101, end: 20070801
  5. NORVASC [Concomitant]
  6. HYZAAR [Concomitant]
  7. POTASSIUM [Concomitant]

REACTIONS (2)
  - CONTUSION [None]
  - MUSCLE SPASMS [None]
